FAERS Safety Report 7474958-0 (Version None)
Quarter: 2011Q2

REPORT INFORMATION
  Report Type: 
  Country: None (occurrence: None)
  Receive Date: 20110512
  Receipt Date: 20110506
  Transmission Date: 20111010
  Serious: Yes (Death)
  Sender: FDA-Public Use
  Company Number: GB-TYCO HEALTHCARE/MALLINCKRODT-T201100907

PATIENT
  Sex: Male

DRUGS (1)
  1. OPTIRAY 300 [Suspect]
     Indication: ANGIOGRAM
     Dosage: 69 ML, SINGLE
     Route: 042
     Dates: start: 20110505, end: 20110505

REACTIONS (3)
  - MALAISE [None]
  - VOMITING [None]
  - PALLOR [None]
